FAERS Safety Report 10163878 (Version 1)
Quarter: 2014Q2

REPORT INFORMATION
  Report Type: Report from Study
  Country: NO (occurrence: NO)
  Receive Date: 20140509
  Receipt Date: 20140509
  Transmission Date: 20141212
  Serious: Yes (Hospitalization)
  Sender: FDA-Public Use
  Company Number: NO-ROCHE-1393240

PATIENT
  Age: 64 Year
  Sex: Female

DRUGS (2)
  1. PEG-INTERFERON ALFA 2A [Suspect]
     Indication: CHRONIC MYELOID LEUKAEMIA
     Dosage: LAST DOSE PRIOR TO EVENT: 14/APR/2014
     Route: 065
  2. DASATINIB [Suspect]
     Indication: CHRONIC MYELOID LEUKAEMIA
     Route: 065

REACTIONS (2)
  - Bradycardia [Recovered/Resolved]
  - Atrial fibrillation [Recovered/Resolved]
